FAERS Safety Report 4322992-1 (Version None)
Quarter: 2004Q1

REPORT INFORMATION
  Report Type: 
  Country: None (occurrence: None)
  Receive Date: 20040322
  Receipt Date: 20040309
  Transmission Date: 20041129
  Serious: Yes (Other)
  Sender: FDA-Public Use
  Company Number: US-JNJFOC-20031100565

PATIENT
  Age: 49 Year
  Sex: Female
  Weight: 158.759 kg

DRUGS (5)
  1. REMICADE [Suspect]
     Indication: RHEUMATOID ARTHRITIS
     Dosage: EVERY 5-8 WEEKS AT DOSES BETWEEN 300-900 MG
     Dates: start: 20030101, end: 20031103
  2. ENBREL [Suspect]
     Indication: RHEUMATOID ARTHRITIS
     Dosage: 25 MBQ, 2 IN 1 WEEK
     Dates: start: 20001101, end: 20021101
  3. METHOTREXATE [Suspect]
     Indication: RHEUMATOID ARTHRITIS
     Dosage: 1 IN 1 WEEK
     Dates: start: 19980301, end: 20031101
  4. PREDNISONE [Concomitant]
  5. PLAQUENIL (TABLETS) HYDROCHLOROTHIAZIDE PHOSPHATE [Concomitant]

REACTIONS (1)
  - LYMPHOMA [None]
